FAERS Safety Report 25959557 (Version 2)
Quarter: 2025Q4

REPORT INFORMATION
  Report Type: Spontaneous
  Country: EU (occurrence: EU)
  Receive Date: 20251026
  Receipt Date: 20251030
  Transmission Date: 20260118
  Serious: Yes (Other)
  Sender: CELLTRION
  Company Number: None

PATIENT

DRUGS (6)
  1. INFLIXIMAB [Suspect]
     Active Substance: INFLIXIMAB
     Indication: Behcet^s syndrome
     Dosage: 22 MILLILITER, MONTHLY
     Route: 042
     Dates: start: 20231204, end: 20250703
  2. COLCHICINE [Concomitant]
     Active Substance: COLCHICINE
     Indication: Behcet^s syndrome
     Dosage: 1 MILLIGRAM 1 DAY
     Route: 048
     Dates: start: 20220202
  3. ASPIRIN [Concomitant]
     Active Substance: ASPIRIN
     Indication: Behcet^s syndrome
     Dosage: 100 MILLIGRAM 1 DAY
     Route: 048
     Dates: start: 20220327
  4. FOSAMAX [Concomitant]
     Active Substance: ALENDRONATE SODIUM
     Indication: Osteoporosis
     Dosage: 70 MILLIGRAM, 1/WEEK
     Route: 048
     Dates: start: 20230405
  5. SIMVASTATIN [Concomitant]
     Active Substance: SIMVASTATIN
     Indication: Dyslipidaemia
     Dosage: 20 MILLIGRAM 1 DAY
     Route: 048
     Dates: start: 202011
  6. METHOTREXATE SODIUM [Concomitant]
     Active Substance: METHOTREXATE SODIUM
     Indication: Behcet^s syndrome
     Dosage: 10 MILLIGRAM, 1/WEEK
     Route: 048
     Dates: start: 202411

REACTIONS (3)
  - Systemic lupus erythematosus [Unknown]
  - Drug level decreased [Recovered/Resolved]
  - Intentional product use issue [Unknown]

NARRATIVE: CASE EVENT DATE: 20240101
